FAERS Safety Report 14922882 (Version 1)
Quarter: 2018Q2

REPORT INFORMATION
  Report Type: Spontaneous
  Country: US (occurrence: US)
  Receive Date: 20180503
  Receipt Date: 20180503
  Transmission Date: 20180711
  Serious: Yes (Hospitalization)
  Sender: FDA-Public Use
  Company Number: None

PATIENT
  Age: 10 Year
  Sex: Female
  Weight: 40.4 kg

DRUGS (6)
  1. CYTARABINE. [Suspect]
     Active Substance: CYTARABINE
     Dates: end: 20180330
  2. PREDNISONE. [Suspect]
     Active Substance: PREDNISONE
     Dates: end: 20180411
  3. DAUNORUBICIN [Suspect]
     Active Substance: DAUNORUBICIN
     Dates: end: 20180406
  4. METHOTREXATE. [Suspect]
     Active Substance: METHOTREXATE
     Dates: end: 20180406
  5. VINCRISTINE SULFATE. [Suspect]
     Active Substance: VINCRISTINE SULFATE
     Dates: end: 20180406
  6. ONCASPAR [Suspect]
     Active Substance: PEGASPARGASE
     Dates: end: 20180402

REACTIONS (8)
  - Mental status changes [None]
  - General physical health deterioration [None]
  - Hyperglycaemia [None]
  - Somnolence [None]
  - Mydriasis [None]
  - Platelet disorder [None]
  - Blood glucose abnormal [None]
  - Pancreatitis [None]

NARRATIVE: CASE EVENT DATE: 20180411
